FAERS Safety Report 7634953-5 (Version None)
Quarter: 2011Q3

REPORT INFORMATION
  Report Type: 
  Country: None (occurrence: None)
  Receive Date: 20110726
  Receipt Date: 20110715
  Transmission Date: 20111222
  Serious: Yes (Hospitalization, Other)
  Sender: FDA-Public Use
  Company Number: US-BAYER-201040243NA

PATIENT
  Age: 51 Year
  Sex: Female

DRUGS (3)
  1. BETASERON [Suspect]
     Indication: RELAPSING-REMITTING MULTIPLE SCLEROSIS
     Route: 058
     Dates: start: 20070411, end: 20070509
  2. BETASERON [Suspect]
     Dosage: UNK UNK, UNK
     Route: 058
     Dates: start: 20070616, end: 20090214
  3. BETASERON [Suspect]
     Dosage: BETAJECT
     Route: 058
     Dates: start: 20100129, end: 20101001

REACTIONS (2)
  - CHEST X-RAY ABNORMAL [None]
  - THYMOMA MALIGNANT [None]
